FAERS Safety Report 4322663-1 (Version None)
Quarter: 2004Q1

REPORT INFORMATION
  Report Type: 
  Country: None (occurrence: None)
  Receive Date: 20040324
  Receipt Date: 20040202
  Transmission Date: 20041129
  Serious: No
  Sender: FDA-Public Use
  Company Number: US-BRISTOL-MYERS SQUIBB COMPANY-12493664

PATIENT
  Age: 35 Year
  Sex: Male
  Weight: 67 kg

DRUGS (2)
  1. REYATAZ [Suspect]
     Indication: HIV INFECTION
     Route: 048
     Dates: start: 20040112
  2. COMBIVIR [Concomitant]
     Indication: HIV INFECTION
     Dosage: TABLETS

REACTIONS (2)
  - ALOPECIA [None]
  - DEAFNESS [None]
